FAERS Safety Report 10555349 (Version 6)
Quarter: 2016Q1

REPORT INFORMATION
  Report Type: Spontaneous
  Country: US (occurrence: US)
  Receive Date: 20141030
  Receipt Date: 20160311
  Transmission Date: 20160525
  Serious: Yes (Hospitalization, Other)
  Sender: FDA-Public Use
  Company Number: US-009507513-1410USA015757

PATIENT
  Sex: Female

DRUGS (2)
  1. FOSAMAX [Suspect]
     Active Substance: ALENDRONATE SODIUM
     Indication: OSTEOPENIA
     Dosage: 70 MG, QW
     Route: 048
     Dates: start: 2001, end: 2009
  2. ALENDRONATE SODIUM. [Suspect]
     Active Substance: ALENDRONATE SODIUM
     Indication: OSTEOPENIA
     Dosage: 70 MG, QW
     Route: 048
     Dates: start: 20080521, end: 2009

REACTIONS (18)
  - Tonsillectomy [Unknown]
  - Cholecystectomy [Unknown]
  - Device failure [Unknown]
  - Nasal septal operation [Unknown]
  - Uterine leiomyoma [Unknown]
  - Procedural complication [Unknown]
  - Back pain [Unknown]
  - Stress fracture [Unknown]
  - Femur fracture [Unknown]
  - Fracture delayed union [Unknown]
  - Femur fracture [Recovering/Resolving]
  - Hypothyroidism [Unknown]
  - Fall [Unknown]
  - Intervertebral disc degeneration [Unknown]
  - Procedural headache [Recovering/Resolving]
  - Hernia [Unknown]
  - Abdominal pain [Unknown]
  - Inflammatory bowel disease [Unknown]

NARRATIVE: CASE EVENT DATE: 200207
